FAERS Safety Report 6145549-9 (Version None)
Quarter: 2009Q2

REPORT INFORMATION
  Report Type: 
  Country: None (occurrence: None)
  Receive Date: 20090402
  Receipt Date: 20090320
  Transmission Date: 20091009
  Serious: Yes (Death, Hospitalization)
  Sender: FDA-Public Use
  Company Number: 2009000871

PATIENT
  Age: 59 Year
  Sex: Male
  Weight: 69 kg

DRUGS (7)
  1. ERLOTINIB (ERLOTINIB) (TABLET) (ERLOTNIB) [Suspect]
     Indication: LUNG SQUAMOUS CELL CARCINOMA STAGE UNSPECIFIED
     Dosage: (150 MG, QD), ORAL
     Route: 048
     Dates: start: 20090120, end: 20090306
  2. MS CONTIN [Concomitant]
  3. MOBIC [Concomitant]
  4. MAGMITT [Concomitant]
  5. MUCOSTA (REBAMIPIDE) [Concomitant]
  6. AMOBAN (ZOPICLONE) [Concomitant]
  7. OPSO (MORPHINE) [Concomitant]

REACTIONS (7)
  - ACUTE RESPIRATORY DISTRESS SYNDROME [None]
  - DIARRHOEA [None]
  - PNEUMONIA [None]
  - PNEUMOTHORAX [None]
  - RASH [None]
  - SEPSIS [None]
  - STOMATITIS [None]
